FAERS Safety Report 8835974 (Version 1)
Quarter: 2012Q4

REPORT INFORMATION
  Report Type: 
  Country: US (occurrence: US)
  Receive Date: 20121011
  Receipt Date: 20121011
  Transmission Date: 20130627
  Serious: No
  Sender: FDA-Public Use
  Company Number: US-PFIZER INC-2012251439

PATIENT
  Age: 66 Year
  Sex: Female
  Weight: 81.63 kg

DRUGS (3)
  1. ALAVERT [Suspect]
     Indication: RHINORRHOEA
     Dosage: 10 mg, single
     Route: 048
     Dates: start: 20121009, end: 20121009
  2. ALAVERT [Suspect]
     Indication: NASAL CONGESTION
  3. LEVOTHROID [Concomitant]
     Indication: HYPOTHYROIDISM
     Dosage: 175 ug, 1x/day

REACTIONS (2)
  - Expired drug administered [Unknown]
  - Drug ineffective [Unknown]
